FAERS Safety Report 7742823-7 (Version None)
Quarter: 2011Q3

REPORT INFORMATION
  Report Type: 
  Country: None (occurrence: None)
  Receive Date: 20110908
  Receipt Date: 20110908
  Transmission Date: 20111222
  Serious: Yes (Other)
  Sender: FDA-Public Use
  Company Number: None

PATIENT
  Sex: Male

DRUGS (3)
  1. SIMVASTATIN [Suspect]
  2. CRESTOR [Suspect]
     Dosage: 10MG ONE DAILY PO
     Route: 048
     Dates: start: 20100122, end: 20110622
  3. PRAVACHOL [Suspect]
     Indication: HYPERLIPIDAEMIA
     Dosage: 40 MG ONE DAILY PO
     Route: 048
     Dates: start: 20110622

REACTIONS (5)
  - MYALGIA [None]
  - HEADACHE [None]
  - DIZZINESS [None]
  - ARTHRALGIA [None]
  - NAUSEA [None]
